FAERS Safety Report 18663963 (Version 1)
Quarter: 2020Q4

REPORT INFORMATION
  Report Type: Spontaneous
  Country: FR (occurrence: FR)
  Receive Date: 20201225
  Receipt Date: 20201225
  Transmission Date: 20210114
  Serious: Yes (Death, Hospitalization)
  Sender: FDA-Public Use
  Company Number: FR-ACCORD-211859

PATIENT
  Age: 81 Year
  Sex: Female
  Weight: 67 kg

DRUGS (5)
  1. METHOTREXATE. [Suspect]
     Active Substance: METHOTREXATE
     Indication: PSORIASIS
     Route: 048
  2. CANDESARTAN. [Concomitant]
     Active Substance: CANDESARTAN
     Route: 048
  3. FENTANYL. [Concomitant]
     Active Substance: FENTANYL
     Route: 062
  4. SPECIAFOLDINE [Concomitant]
     Active Substance: FOLIC ACID
     Dosage: STRENGTH-5 MG
     Route: 048
  5. ANTADYS [Suspect]
     Active Substance: FLURBIPROFEN
     Indication: PAIN
     Dosage: STRENGTH- 100 MG, 1 / D IF NECESSARY
     Route: 048

REACTIONS (2)
  - Urinary tract infection [Recovered/Resolved]
  - Meningoencephalitis herpetic [Fatal]

NARRATIVE: CASE EVENT DATE: 20200512
